FAERS Safety Report 13944886 (Version 1)
Quarter: 2017Q3

REPORT INFORMATION
  Report Type: Spontaneous
  Country: US (occurrence: US)
  Receive Date: 20170907
  Receipt Date: 20170907
  Transmission Date: 20171128
  Serious: No
  Sender: FDA-Public Use
  Company Number: US-009507513-1708USA006625

PATIENT

DRUGS (6)
  1. PLAQUENIL [Concomitant]
     Active Substance: HYDROXYCHLOROQUINE SULFATE
  2. ZEPATIER [Suspect]
     Active Substance: ELBASVIR\GRAZOPREVIR
     Indication: HEPATITIS C
     Dosage: 1 TABLET DAILY
     Route: 048
     Dates: start: 201707
  3. MOBIC [Concomitant]
     Active Substance: MELOXICAM
  4. FENOFIBRATE. [Concomitant]
     Active Substance: FENOFIBRATE
  5. RISPERIDONE. [Concomitant]
     Active Substance: RISPERIDONE
  6. SIMVASTATIN TABLETS, USP [Concomitant]
     Active Substance: SIMVASTATIN

REACTIONS (2)
  - Urticaria [Recovering/Resolving]
  - Fatigue [Unknown]

NARRATIVE: CASE EVENT DATE: 2017
